FAERS Safety Report 9135967 (Version 3)
Quarter: 2014Q1

REPORT INFORMATION
  Report Type: Spontaneous
  Country: GB (occurrence: None)
  Receive Date: 20130226
  Receipt Date: 20140124
  Transmission Date: 20141002
  Serious: Yes (Death, Hospitalization, Other)
  Sender: FDA-Public Use
  Company Number: 1600183

PATIENT
  Age: 9 Month
  Sex: Female
  Weight: 8.5 kg

DRUGS (6)
  1. PHENYTOIN [Suspect]
     Indication: STATUS EPILEPTICUS
     Route: 042
     Dates: start: 20121128, end: 20121128
  2. MIDAZOLAM [Suspect]
     Indication: CONVULSION
     Dosage: 2.5  MG  MILLIGRAM (S),  UNKNOWN,  ?BUCCAL?11/28/2012  -  11/28/2012  (1 DAYS)
     Route: 002
     Dates: start: 20121128, end: 20121128
  3. SODIUM VALPROATE [Suspect]
     Indication: CONVULSION
     Dosage: (2 DAY)
     Route: 048
     Dates: start: 20120718, end: 20121128
  4. LEVETIRACETAM [Suspect]
     Indication: EPILEPSY
     Dosage: 2 DAY
     Route: 048
     Dates: start: 20120709, end: 20121128
  5. PARACETAMOL [Concomitant]
  6. (DIAZEPAM) [Concomitant]

REACTIONS (7)
  - Cardiac arrest [None]
  - Respiratory acidosis [None]
  - Tachycardia [None]
  - Hypoventilation [None]
  - Drug ineffective [None]
  - Respiratory distress [None]
  - Prescribed overdose [None]
